FAERS Safety Report 24608464 (Version 1)
Quarter: 2024Q4

REPORT INFORMATION
  Report Type: Spontaneous
  Country: PT (occurrence: PT)
  Receive Date: 20241112
  Receipt Date: 20241112
  Transmission Date: 20250115
  Serious: Yes (Hospitalization, Other)
  Sender: AUROBINDO
  Company Number: PT-EMA-DD-20190123-Gonuguntla_n1-180604

PATIENT
  Age: 57 Year
  Sex: Male

DRUGS (6)
  1. MYCOPHENOLATE MOFETIL [Suspect]
     Active Substance: MYCOPHENOLATE MOFETIL
     Indication: Prophylaxis against transplant rejection
     Dosage: UNK
     Route: 065
  2. MYCOPHENOLATE MOFETIL [Suspect]
     Active Substance: MYCOPHENOLATE MOFETIL
     Indication: Immunosuppression
  3. TACROLIMUS [Suspect]
     Active Substance: TACROLIMUS
     Indication: Prophylaxis against transplant rejection
     Dosage: UNK
     Route: 065
  4. TACROLIMUS [Suspect]
     Active Substance: TACROLIMUS
     Indication: Renal transplant
  5. PREDNISOLONE [Suspect]
     Active Substance: PREDNISOLONE
     Indication: Prophylaxis against transplant rejection
     Dosage: UNK
     Route: 065
  6. PREDNISOLONE [Suspect]
     Active Substance: PREDNISOLONE
     Indication: Immunosuppression

REACTIONS (10)
  - Diverticulitis [Unknown]
  - Intestinal anastomosis [Recovering/Resolving]
  - Postoperative wound infection [Unknown]
  - Diverticular perforation [Unknown]
  - Endocarditis [Recovering/Resolving]
  - Enterococcal bacteraemia [Unknown]
  - Transplant failure [Unknown]
  - Dehiscence [Recovering/Resolving]
  - Intestinal fistula [Recovering/Resolving]
  - Wound dehiscence [Recovering/Resolving]
